FAERS Safety Report 10178670 (Version 1)
Quarter: 2014Q2

REPORT INFORMATION
  Report Type: Spontaneous
  Country: US (occurrence: US)
  Receive Date: 20140519
  Receipt Date: 20140519
  Transmission Date: 20141212
  Serious: No
  Sender: FDA-Public Use
  Company Number: US-TEVA-482076USA

PATIENT
  Sex: Female

DRUGS (1)
  1. COPAXONE [Suspect]
     Dates: start: 1998, end: 1999

REACTIONS (1)
  - Injection site bruising [Recovered/Resolved]
